FAERS Safety Report 25056342 (Version 1)
Quarter: 2025Q1

REPORT INFORMATION
  Report Type: Spontaneous
  Country: NO (occurrence: NO)
  Receive Date: 20250310
  Receipt Date: 20250310
  Transmission Date: 20250409
  Serious: Yes (Hospitalization, Other)
  Sender: NOVO NORDISK
  Company Number: None

PATIENT
  Age: 38 Year
  Sex: Female
  Weight: 90 kg

DRUGS (1)
  1. SAXENDA [Suspect]
     Active Substance: LIRAGLUTIDE
     Indication: Obesity
     Route: 058

REACTIONS (2)
  - Cholelithiasis [Unknown]
  - Cholecystectomy [Unknown]

NARRATIVE: CASE EVENT DATE: 20230120
